FAERS Safety Report 18912387 (Version 5)
Quarter: 2025Q2

REPORT INFORMATION
  Report Type: Report from Study
  Country: US (occurrence: US)
  Receive Date: 20210218
  Receipt Date: 20250402
  Transmission Date: 20250717
  Serious: No
  Sender: TAKEDA
  Company Number: US-TAKEDA-2021TUS009994

PATIENT
  Sex: Male
  Weight: 84 kg

DRUGS (36)
  1. HUMAN IMMUNOGLOBULIN G [Suspect]
     Active Substance: HUMAN IMMUNOGLOBULIN G
     Indication: Immunodeficiency common variable
     Dosage: 60 GRAM, Q3WEEKS
     Dates: start: 20200312
  2. HUMAN IMMUNOGLOBULIN G [Suspect]
     Active Substance: HUMAN IMMUNOGLOBULIN G
     Dosage: 60 GRAM, Q3WEEKS
  3. ACETAMINOPHEN [Concomitant]
     Active Substance: ACETAMINOPHEN
  4. DIPHENHYDRAMINE [Concomitant]
     Active Substance: DIPHENHYDRAMINE
  5. SODIUM CHLORIDE [Concomitant]
     Active Substance: SODIUM CHLORIDE
  6. EPINEPHRINE [Concomitant]
     Active Substance: EPINEPHRINE
  7. Lmx [Concomitant]
  8. UREA [Concomitant]
     Active Substance: UREA
  9. FIBERCON [Concomitant]
     Active Substance: CALCIUM POLYCARBOPHIL
  10. XYZAL [Concomitant]
     Active Substance: LEVOCETIRIZINE DIHYDROCHLORIDE
  11. MONTELUKAST [Concomitant]
     Active Substance: MONTELUKAST
  12. PROPRANOLOL [Concomitant]
     Active Substance: PROPRANOLOL HYDROCHLORIDE
  13. DOXYCYCLINE [Concomitant]
     Active Substance: DOXYCYCLINE
  14. TRIAMCINOLONE [Concomitant]
     Active Substance: TRIAMCINOLONE
  15. SYMBICORT [Concomitant]
     Active Substance: BUDESONIDE\FORMOTEROL FUMARATE DIHYDRATE
  16. CITALOPRAM [Concomitant]
     Active Substance: CITALOPRAM
  17. LEVOCETIRIZINE [Concomitant]
     Active Substance: LEVOCETIRIZINE
  18. METFORMIN [Concomitant]
     Active Substance: METFORMIN HYDROCHLORIDE
  19. ARIPIPRAZOLE [Concomitant]
     Active Substance: ARIPIPRAZOLE
  20. MELATONIN [Concomitant]
     Active Substance: MELATONIN
  21. LORATADINE [Concomitant]
     Active Substance: LORATADINE
  22. CLOTRIMAZOLE 7 [Concomitant]
     Active Substance: CLOTRIMAZOLE
  23. LACTOBACILLUS ACIDOPHILUS [Concomitant]
     Active Substance: LACTOBACILLUS ACIDOPHILUS
  24. AZITHROMYCIN [Concomitant]
     Active Substance: AZITHROMYCIN
  25. TRAZODONE HCL [Concomitant]
     Active Substance: TRAZODONE HYDROCHLORIDE
  26. CITALOPRAM HYDROBROMIDE [Concomitant]
     Active Substance: CITALOPRAM HYDROBROMIDE
  27. LEVOCETIRIZINE DIHYDROCHLORIDE [Concomitant]
     Active Substance: LEVOCETIRIZINE DIHYDROCHLORIDE
  28. CLINDAMYCIN HYDROCHLORIDE [Concomitant]
     Active Substance: CLINDAMYCIN HYDROCHLORIDE
  29. MONTELUKAST SODIUM [Concomitant]
     Active Substance: MONTELUKAST SODIUM
  30. PROPRANOLOL HYDROCHLORIDE [Concomitant]
     Active Substance: PROPRANOLOL HYDROCHLORIDE
  31. JANUVIA [Concomitant]
     Active Substance: SITAGLIPTIN PHOSPHATE
  32. JARDIANCE [Concomitant]
     Active Substance: EMPAGLIFLOZIN
  33. LIDOCAINE [Concomitant]
     Active Substance: LIDOCAINE
  34. LORATADINE D [Concomitant]
     Active Substance: LORATADINE\PSEUDOEPHEDRINE SULFATE
  35. DIPHENHYDRAMINE HYDROCHLORIDE [Concomitant]
     Active Substance: DIPHENHYDRAMINE HYDROCHLORIDE
  36. MELOXICAM [Concomitant]
     Active Substance: MELOXICAM

REACTIONS (11)
  - COVID-19 [Unknown]
  - Localised infection [Unknown]
  - Cellulitis [Unknown]
  - Incorrect dose administered [Unknown]
  - Respiratory tract infection [Not Recovered/Not Resolved]
  - Sinusitis [Recovered/Resolved]
  - Oedema peripheral [Recovering/Resolving]
  - Infusion site extravasation [Unknown]
  - Infusion site swelling [Unknown]
  - Erythema [Recovered/Resolved]
  - Infusion site pain [Unknown]
